FAERS Safety Report 8810025 (Version 1)
Quarter: 2012Q4

REPORT INFORMATION
  Report Type: 
  Country: GB (occurrence: GB)
  Receive Date: 20120926
  Receipt Date: 20120926
  Transmission Date: 20130627
  Serious: Yes (Other)
  Sender: FDA-Public Use
  Company Number: PHHY2012GB081629

PATIENT

DRUGS (1)
  1. HALOPERIDOL [Suspect]
     Indication: TOURETTE^S DISORDER
     Dosage: 500 ug, BID
     Dates: start: 20120904, end: 20120907

REACTIONS (2)
  - Oculogyric crisis [Recovered/Resolved]
  - Eye movement disorder [Unknown]
